FAERS Safety Report 6244604-2 (Version None)
Quarter: 2009Q2

REPORT INFORMATION
  Report Type: 
  Country: None (occurrence: None)
  Receive Date: 20090623
  Receipt Date: 20090616
  Transmission Date: 20091009
  Serious: Yes (Death, Life-Threatening)
  Sender: FDA-Public Use
  Company Number: SPV1-2009-01205

PATIENT
  Age: 55 Year
  Sex: Female
  Weight: 60.3 kg

DRUGS (4)
  1. ANAGRELIDE HYDROCHLORIDE [Suspect]
     Dosage: ORAL
     Route: 048
     Dates: start: 20080211, end: 20090501
  2. ASPIRIN [Concomitant]
  3. HYDROXYCARBAMIDE (HYDROXYCARBAMIDE) UNKNOWN [Concomitant]
  4. PENICILLIN NOS (PENICILLIN NOS) UNKNOWN [Concomitant]

REACTIONS (2)
  - BRAIN COMPRESSION [None]
  - CEREBRAL HAEMORRHAGE [None]
